FAERS Safety Report 25117413 (Version 2)
Quarter: 2025Q2

REPORT INFORMATION
  Report Type: Spontaneous
  Country: US (occurrence: US)
  Receive Date: 20250325
  Receipt Date: 20250401
  Transmission Date: 20250717
  Serious: Yes (Other)
  Sender: VELOXIS PHARMACEUTICALS
  Company Number: US-MLMSERVICE-20250313-PI439718-00077-13

PATIENT
  Age: 66 Year
  Sex: Male

DRUGS (5)
  1. TACROLIMUS [Suspect]
     Active Substance: TACROLIMUS
     Indication: Immunosuppressant drug therapy
     Route: 048
  2. CAPECITABINE [Suspect]
     Active Substance: CAPECITABINE
     Indication: Actinic keratosis
     Route: 048
  3. CAPECITABINE [Suspect]
     Active Substance: CAPECITABINE
     Indication: Squamous cell carcinoma of skin
  4. PREDNISONE [Suspect]
     Active Substance: PREDNISONE
     Indication: Immunosuppressant drug therapy
  5. MYCOPHENOLATE MOFETIL [Suspect]
     Active Substance: MYCOPHENOLATE MOFETIL
     Indication: Immunosuppressant drug therapy

REACTIONS (3)
  - Paradoxical drug reaction [Unknown]
  - Squamous cell carcinoma of skin [Unknown]
  - Condition aggravated [Unknown]
